FAERS Safety Report 13536121 (Version 1)
Quarter: 2017Q2

REPORT INFORMATION
  Report Type: Spontaneous
  Country: CA (occurrence: CA)
  Receive Date: 20170511
  Receipt Date: 20170511
  Transmission Date: 20170830
  Serious: Yes (Hospitalization, Other)
  Sender: FDA-Public Use
  Company Number: CA-JNJFOC-20170507386

PATIENT
  Age: 79 Year
  Sex: Female

DRUGS (1)
  1. RIVAROXABAN [Suspect]
     Active Substance: RIVAROXABAN
     Indication: PRODUCT USED FOR UNKNOWN INDICATION
     Route: 048

REACTIONS (5)
  - Aneurysm [Recovered/Resolved]
  - Peritoneal haematoma [Recovering/Resolving]
  - Aortic intramural haematoma [Recovering/Resolving]
  - Vascular pseudoaneurysm ruptured [Recovered/Resolved]
  - Syncope [Recovered/Resolved]
